FAERS Safety Report 24541205 (Version 1)
Quarter: 2024Q4

REPORT INFORMATION
  Report Type: Spontaneous
  Country: US (occurrence: US)
  Receive Date: 20241023
  Receipt Date: 20241023
  Transmission Date: 20250115
  Serious: Yes (Hospitalization, Other)
  Sender: DR REDDYS
  Company Number: US-DRL-USA-LIT/USA/24/0015642

PATIENT
  Age: 16 Year
  Sex: Female

DRUGS (2)
  1. SODIUM NITROPRUSSIDE [Suspect]
     Active Substance: SODIUM NITROPRUSSIDE
     Indication: Cardiac failure
     Dosage: 0.7 UG/KG/MIN
  2. MILRINONE [Concomitant]
     Active Substance: MILRINONE
     Indication: Ejection fraction
     Dosage: 0.3 ?G/KG/MIN

REACTIONS (1)
  - Drug ineffective [Unknown]
